FAERS Safety Report 16012374 (Version 1)
Quarter: 2019Q1

REPORT INFORMATION
  Report Type: Spontaneous
  Country: US (occurrence: US)
  Receive Date: 20190227
  Receipt Date: 20190227
  Transmission Date: 20190418
  Serious: No
  Sender: FDA-Public Use
  Company Number: US-BAYER-2019-040204

PATIENT

DRUGS (7)
  1. LEVAQUIN [Suspect]
     Active Substance: LEVOFLOXACIN
  2. IPRATROPIUM [Suspect]
     Active Substance: IPRATROPIUM
  3. ADVAIR HFA [Suspect]
     Active Substance: FLUTICASONE PROPIONATE\SALMETEROL XINAFOATE
  4. AMITIZA [Suspect]
     Active Substance: LUBIPROSTONE
  5. METHADONE [Suspect]
     Active Substance: METHADONE HYDROCHLORIDE
  6. ALEVE [Suspect]
     Active Substance: NAPROXEN SODIUM
     Dosage: UNK
  7. SULFA [SULFADIAZINE] [Suspect]
     Active Substance: SULFADIAZINE

REACTIONS (1)
  - Drug hypersensitivity [Unknown]
